FAERS Safety Report 10952894 (Version 1)
Quarter: 2015Q1

REPORT INFORMATION
  Report Type: Spontaneous
  Country: SA (occurrence: None)
  Receive Date: 20150323
  Receipt Date: 20150323
  Transmission Date: 20150721
  Serious: Yes (Other)
  Sender: FDA-Public Use
  Company Number: ADR-2015-00559

PATIENT
  Age: 30 Year
  Sex: Female

DRUGS (6)
  1. ESCITALOPRAM [Suspect]
     Active Substance: ESCITALOPRAM OXALATE
  2. PHENYTOIN. [Suspect]
     Active Substance: PHENYTOIN
  3. BACLOFEN. [Suspect]
     Active Substance: BACLOFEN
     Indication: MUSCLE SPASMS
  4. BACLOFEN. [Suspect]
     Active Substance: BACLOFEN
     Indication: PAIN
  5. PREGABALIN. [Suspect]
     Active Substance: PREGABALIN
     Indication: MUSCLE SPASMS
  6. CARBAMAZEPINE. [Suspect]
     Active Substance: CARBAMAZEPINE

REACTIONS (13)
  - Musculoskeletal stiffness [None]
  - Drug-induced liver injury [None]
  - Anxiety [None]
  - Muscle rigidity [None]
  - Hypertonia [None]
  - Condition aggravated [None]
  - Clonus [None]
  - Muscle tightness [None]
  - Hyporeflexia [None]
  - Drug eruption [None]
  - Pain in extremity [None]
  - Hyperreflexia [None]
  - Muscle spasms [None]

NARRATIVE: CASE EVENT DATE: 20141207
